FAERS Safety Report 12979930 (Version 1)
Quarter: 2016Q4

REPORT INFORMATION
  Report Type: Spontaneous
  Country: FR (occurrence: FR)
  Receive Date: 20161128
  Receipt Date: 20161128
  Transmission Date: 20170207
  Serious: Yes (Hospitalization, Other)
  Sender: FDA-Public Use
  Company Number: FR-MYLANLABS-2016M1051266

PATIENT

DRUGS (1)
  1. VALPROIC ACID MYLAN [Suspect]
     Active Substance: VALPROIC ACID
     Indication: MIGRAINE
     Dosage: 500 MG, QD
     Dates: start: 20080929, end: 201208

REACTIONS (2)
  - Off label use [Unknown]
  - Pancreatitis acute [Unknown]
